FAERS Safety Report 9009144 (Version 2)
Quarter: 2013Q1

REPORT INFORMATION
  Report Type: Spontaneous
  Country: NO (occurrence: NO)
  Receive Date: 20130111
  Receipt Date: 20130124
  Transmission Date: 20140127
  Serious: Yes (Hospitalization)
  Sender: FDA-Public Use
  Company Number: NO-JNJFOC-20130102489

PATIENT
  Age: 47 Year
  Sex: Male

DRUGS (3)
  1. REMICADE [Suspect]
     Indication: CROHN^S DISEASE
     Route: 042
     Dates: start: 20120903, end: 20121017
  2. FRAGMINE [Concomitant]
     Indication: PULMONARY EMBOLISM
     Route: 058
  3. PREDNISOLON [Concomitant]
     Indication: CROHN^S DISEASE
     Dosage: OCCATIONAL USE ACCORDING TO NEED
     Route: 048

REACTIONS (1)
  - Tuberculosis [Recovering/Resolving]
